FAERS Safety Report 9374351 (Version 2)
Quarter: 2013Q3

REPORT INFORMATION
  Report Type: Spontaneous
  Country: GB (occurrence: GB)
  Receive Date: 20130628
  Receipt Date: 20130725
  Transmission Date: 20140515
  Serious: Yes (Other)
  Sender: FDA-Public Use
  Company Number: PHFR2013GB001342

PATIENT
  Age: 62 Year
  Sex: Male

DRUGS (2)
  1. CLOZARIL [Suspect]
     Indication: SCHIZOPHRENIA
     Dosage: UNK UKN, UNK
     Route: 048
     Dates: start: 20010701
  2. CLOZARIL [Suspect]
     Dosage: DOSE REDUCED
     Route: 048

REACTIONS (3)
  - Carotid arteriosclerosis [Recovered/Resolved]
  - Hypertension [Recovered/Resolved with Sequelae]
  - Hyperlipidaemia [Recovered/Resolved with Sequelae]
